FAERS Safety Report 5387516-9 (Version None)
Quarter: 2007Q3

REPORT INFORMATION
  Report Type: 
  Country: None (occurrence: None)
  Receive Date: 20070716
  Receipt Date: 20070711
  Transmission Date: 20080115
  Serious: Yes (Hospitalization)
  Sender: FDA-Public Use
  Company Number: US-BRISTOL-MYERS SQUIBB COMPANY-13834189

PATIENT
  Age: 52 Year
  Sex: Male
  Weight: 80 kg

DRUGS (6)
  1. DDP [Suspect]
     Indication: NEOPLASM MALIGNANT
     Dates: start: 20070521, end: 20070521
  2. RADIATION THERAPY [Suspect]
     Indication: NEOPLASM MALIGNANT
     Dates: start: 20070611, end: 20070611
  3. METHADONE HCL [Concomitant]
  4. XANAX [Concomitant]
     Route: 048
  5. ZOFRAN [Concomitant]
  6. DILAUDID [Concomitant]

REACTIONS (5)
  - CHILLS [None]
  - CONFUSIONAL STATE [None]
  - HYPONATRAEMIA [None]
  - NEUTROPHIL COUNT DECREASED [None]
  - PYREXIA [None]
